FAERS Safety Report 10784418 (Version 1)
Quarter: 2015Q1

REPORT INFORMATION
  Report Type: Spontaneous
  Country: US (occurrence: None)
  Receive Date: 20150209
  Receipt Date: 20150209
  Transmission Date: 20150721
  Serious: Yes (Disabling)
  Sender: FDA-Public Use
  Company Number: None

PATIENT
  Age: 67 Year
  Sex: Female
  Weight: 74.39 kg

DRUGS (2)
  1. LEVAQUIN [Suspect]
     Active Substance: LEVOFLOXACIN
     Indication: EAR PAIN
     Dosage: 1 PILL
     Route: 048
     Dates: start: 20150101, end: 20150110
  2. LEVAQUIN [Suspect]
     Active Substance: LEVOFLOXACIN
     Indication: ACUTE SINUSITIS
     Dosage: 1 PILL
     Route: 048
     Dates: start: 20150101, end: 20150110

REACTIONS (14)
  - Musculoskeletal disorder [None]
  - Joint lock [None]
  - Malaise [None]
  - Muscle injury [None]
  - Mobility decreased [None]
  - Urinary tract infection [None]
  - Joint crepitation [None]
  - Fatigue [None]
  - Nervousness [None]
  - Pain in extremity [None]
  - Arthralgia [None]
  - Headache [None]
  - Musculoskeletal pain [None]
  - Joint swelling [None]

NARRATIVE: CASE EVENT DATE: 20150101
